FAERS Safety Report 17565730 (Version 10)
Quarter: 2022Q1

REPORT INFORMATION
  Report Type: Spontaneous
  Country: GB (occurrence: GB)
  Receive Date: 20200320
  Receipt Date: 20220322
  Transmission Date: 20220423
  Serious: Yes (Hospitalization, Other)
  Sender: FDA-Public Use
  Company Number: GB-002147023-NVSC2020GB056009

PATIENT
  Age: 68 Year
  Sex: Male

DRUGS (27)
  1. EPLERENONE [Suspect]
     Active Substance: EPLERENONE
     Dosage: 25 MG  (GARGEL, TABLET FOR SOLUTION)
  2. EPLERENONE [Suspect]
     Active Substance: EPLERENONE
     Dosage: UNK
  3. RAMIPRIL [Suspect]
     Active Substance: RAMIPRIL
     Dosage: 5 MG, QD
  4. RAMIPRIL [Suspect]
     Active Substance: RAMIPRIL
     Dosage: 2.5 MG, 2X/DAY
  5. BISOPROLOL [Suspect]
     Active Substance: BISOPROLOL
     Dosage: 7.5 MG
     Route: 065
  6. BISOPROLOL [Suspect]
     Active Substance: BISOPROLOL
     Dosage: UNK
  7. BISOPROLOL [Suspect]
     Active Substance: BISOPROLOL
     Dosage: 5 MG, DAILY
  8. BISOPROLOL [Suspect]
     Active Substance: BISOPROLOL
     Dosage: 25 MG, DAILY
  9. BISOPROLOL [Suspect]
     Active Substance: BISOPROLOL
     Dosage: 2.5 DF
  10. SACUBITRIL\VALSARTAN [Suspect]
     Active Substance: SACUBITRIL\VALSARTAN
     Dosage: 2 DF, BID 49/51 MG (ONCE IN 12 HOURS)
     Route: 065
  11. SACUBITRIL\VALSARTAN [Suspect]
     Active Substance: SACUBITRIL\VALSARTAN
     Dosage: 1 DF, BID 24/26 MG  (ONCE IN 12 HOURS)
     Route: 065
  12. SACUBITRIL\VALSARTAN [Suspect]
     Active Substance: SACUBITRIL\VALSARTAN
     Dosage: 2 DOSAGE FORM, BID
  13. SACUBITRIL\VALSARTAN [Suspect]
     Active Substance: SACUBITRIL\VALSARTAN
     Dosage: 4 DOSAGE FORM, ONCE A DAY
  14. SACUBITRIL\VALSARTAN [Suspect]
     Active Substance: SACUBITRIL\VALSARTAN
     Dosage: 2 DOSAGE FORM (24/26 MG) ONCE IN 12 HOURS, BID
  15. ISOSORBIDE MONONITRATE [Suspect]
     Active Substance: ISOSORBIDE MONONITRATE
     Dosage: 25 MG QD
  16. ISOSORBIDE MONONITRATE [Suspect]
     Active Substance: ISOSORBIDE MONONITRATE
     Dosage: UNK
  17. IVABRADINE [Suspect]
     Active Substance: IVABRADINE
     Dosage: 2.5 MG, BID (ONCE IN 12 HOUR)
     Route: 065
  18. IVABRADINE [Suspect]
     Active Substance: IVABRADINE
     Dosage: UNK, BID
  19. IVABRADINE [Suspect]
     Active Substance: IVABRADINE
     Dosage: 5 MG, DAILY
  20. METOLAZONE [Concomitant]
     Active Substance: METOLAZONE
     Dosage: 2.5 MG, Q3W
     Route: 065
  21. METOLAZONE [Concomitant]
     Active Substance: METOLAZONE
     Dosage: 2.5 OT, Q3W
     Route: 065
  22. METOLAZONE [Concomitant]
     Active Substance: METOLAZONE
     Dosage: 3 DF, QW
  23. BUMETANIDE [Concomitant]
     Active Substance: BUMETANIDE
     Dosage: 3 OT, BID
     Route: 065
  24. BUMETANIDE [Concomitant]
     Active Substance: BUMETANIDE
     Dosage: 1 DF (2/1 MG)
  25. BUMETANIDE [Concomitant]
     Active Substance: BUMETANIDE
     Dosage: 1 DF (3/2 MG)
  26. BUMETANIDE [Concomitant]
     Active Substance: BUMETANIDE
     Dosage: 3 MG, BID (ONCE IN 12 HOURS)
  27. BUMETANIDE [Concomitant]
     Active Substance: BUMETANIDE
     Dosage: 2.5 MG 3 WEEKLY

REACTIONS (8)
  - Venous pressure jugular increased [Unknown]
  - Glomerular filtration rate decreased [Unknown]
  - Oedema peripheral [Unknown]
  - Blood potassium increased [Unknown]
  - Sinus bradycardia [Unknown]
  - Blood pressure systolic decreased [Unknown]
  - Dizziness [Unknown]
  - Blood pressure decreased [Unknown]

NARRATIVE: CASE EVENT DATE: 20200101
